FAERS Safety Report 16058041 (Version 1)
Quarter: 2019Q1

REPORT INFORMATION
  Report Type: Spontaneous
  Country: CN (occurrence: CN)
  Receive Date: 20190311
  Receipt Date: 20190311
  Transmission Date: 20190418
  Serious: Yes (Other)
  Sender: FDA-Public Use
  Company Number: CN-PFIZER INC-2019104449

PATIENT
  Age: 45 Year
  Sex: Female

DRUGS (3)
  1. LYRICA [Suspect]
     Active Substance: PREGABALIN
     Indication: POST HERPETIC NEURALGIA
     Dosage: 1 DF, DAILY
     Route: 048
     Dates: start: 20190305, end: 20190306
  2. VITAMIN B-1 [Concomitant]
     Active Substance: THIAMINE HYDROCHLORIDE
  3. MECOBALAMINE [Concomitant]
     Active Substance: METHYLCOBALAMIN

REACTIONS (2)
  - Abdominal pain upper [Recovered/Resolved]
  - Angina pectoris [Recovered/Resolved]
